FAERS Safety Report 8064486-6 (Version None)
Quarter: 2012Q1

REPORT INFORMATION
  Report Type: 
  Country: None (occurrence: None)
  Receive Date: 20120123
  Receipt Date: 20021021
  Transmission Date: 20120608
  Serious: Yes (Hospitalization, Other)
  Sender: FDA-Public Use
  Company Number: PHHY2002FR002885

PATIENT
  Age: 41 Year
  Sex: Female

DRUGS (3)
  1. CYCLOPHOSPHAMIDE [Concomitant]
  2. GLEEVEC [Suspect]
     Indication: CHRONIC MYELOID LEUKAEMIA
     Dosage: 600 MG, PER DAY
     Dates: end: 20020221
  3. BUSULFAN [Concomitant]

REACTIONS (9)
  - CD4/CD8 RATIO DECREASED [None]
  - DRUG ERUPTION [None]
  - PRURITUS [None]
  - SKIN LESION [None]
  - LICHENOID KERATOSIS [None]
  - ALVEOLITIS ALLERGIC [None]
  - CONJUNCTIVITIS [None]
  - COMPUTERISED TOMOGRAM ABNORMAL [None]
  - ARTHRALGIA [None]
